FAERS Safety Report 21552572 (Version 5)
Quarter: 2023Q1

REPORT INFORMATION
  Report Type: Report from Study
  Country: DZ (occurrence: None)
  Receive Date: 20221104
  Receipt Date: 20230116
  Transmission Date: 20230417
  Serious: Yes (Other)
  Sender: FDA-Public Use
  Company Number: DZ-EMD Serono-9361345

PATIENT
  Age: 54 Year
  Sex: Female
  Weight: 66 kg

DRUGS (1)
  1. REBIF [Suspect]
     Active Substance: INTERFERON BETA-1A
     Indication: Multiple sclerosis
     Route: 058
     Dates: start: 20130101

REACTIONS (9)
  - Diabetes mellitus [Unknown]
  - Weight decreased [Unknown]
  - Cardiovascular disorder [Not Recovered/Not Resolved]
  - Venous occlusion [Not Recovered/Not Resolved]
  - Dyspnoea [Not Recovered/Not Resolved]
  - Palpitations [Not Recovered/Not Resolved]
  - Hypertension [Unknown]
  - Stress [Not Recovered/Not Resolved]
  - Vision blurred [Not Recovered/Not Resolved]

NARRATIVE: CASE EVENT DATE: 20221019
